FAERS Safety Report 4837915-6 (Version None)
Quarter: 2005Q4

REPORT INFORMATION
  Report Type: 
  Country: None (occurrence: None)
  Receive Date: 20051128
  Receipt Date: 20051115
  Transmission Date: 20060501
  Serious: Yes (Hospitalization)
  Sender: FDA-Public Use
  Company Number: JP-NOVOPROD-248647

PATIENT
  Age: 72 Year
  Sex: Female
  Weight: 50 kg

DRUGS (1)
  1. NOVOLIN R PENFILL CHU [Suspect]
     Indication: INSULIN-REQUIRING TYPE II DIABETES MELLITUS
     Route: 058
     Dates: start: 20010101

REACTIONS (7)
  - ANAEMIA [None]
  - ANTI-INSULIN ANTIBODY POSITIVE [None]
  - CARDIAC MURMUR [None]
  - HYPERGLYCAEMIA [None]
  - HYPOGLYCAEMIA [None]
  - HYPOREFLEXIA [None]
  - OEDEMA PERIPHERAL [None]
